FAERS Safety Report 8302342-6 (Version None)
Quarter: 2012Q2

REPORT INFORMATION
  Report Type: 
  Country: None (occurrence: None)
  Receive Date: 20120418
  Receipt Date: 20120418
  Transmission Date: 20120825
  Serious: Yes (Hospitalization)
  Sender: FDA-Public Use
  Company Number: None

PATIENT
  Age: 56 Year
  Sex: Male
  Weight: 72.9 kg

DRUGS (2)
  1. BOCEPREVIR [Suspect]
     Indication: HEPATITIS C
     Dosage: 800 MG TID PO
     Route: 048
     Dates: start: 20111116
  2. BOCEPREVIR [Suspect]
     Indication: HEPATITIS C
     Dosage: 600 MG BID PO
     Route: 048
     Dates: start: 20111021

REACTIONS (3)
  - INFLUENZA LIKE ILLNESS [None]
  - MYOCARDIAL ISCHAEMIA [None]
  - ANAEMIA [None]
